FAERS Safety Report 4446157-8 (Version None)
Quarter: 2004Q3

REPORT INFORMATION
  Report Type: 
  Country: None (occurrence: None)
  Receive Date: 20040907
  Receipt Date: 20020516
  Transmission Date: 20050211
  Serious: Yes (Hospitalization, Disabling)
  Sender: FDA-Public Use
  Company Number: US-MERCK-0205USA02092

PATIENT
  Age: 55 Year
  Sex: Female
  Weight: 77 kg

DRUGS (11)
  1. SOMA [Concomitant]
     Route: 065
  2. MOTRIN [Concomitant]
     Route: 065
  3. VIOXX [Suspect]
     Indication: PAIN
     Route: 048
     Dates: end: 20001001
  4. VIOXX [Suspect]
     Route: 048
     Dates: start: 20001025
  5. VIOXX [Suspect]
     Route: 048
     Dates: start: 20010101, end: 20010710
  6. VIOXX [Suspect]
     Route: 048
     Dates: start: 20010101
  7. VIOXX [Suspect]
     Indication: ARTHRITIS
     Route: 048
     Dates: end: 20001001
  8. VIOXX [Suspect]
     Route: 048
     Dates: start: 20001025
  9. VIOXX [Suspect]
     Route: 048
     Dates: start: 20010101, end: 20010710
  10. VIOXX [Suspect]
     Route: 048
     Dates: start: 20010101
  11. LAMISIL [Concomitant]
     Indication: ONYCHOMYCOSIS
     Route: 065

REACTIONS (29)
  - ACTIVITIES OF DAILY LIVING IMPAIRED [None]
  - AORTIC CALCIFICATION [None]
  - ARTHRALGIA [None]
  - ARTHRITIS [None]
  - ATAXIA [None]
  - BLOOD CHLORIDE INCREASED [None]
  - CARDIOMEGALY [None]
  - CAROTID ARTERY STENOSIS [None]
  - CEREBELLAR SYNDROME [None]
  - CEREBRAL INFARCTION [None]
  - CEREBRAL ISCHAEMIA [None]
  - CEREBROVASCULAR ACCIDENT [None]
  - CHEST PAIN [None]
  - DEPRESSION [None]
  - EYE IRRITATION [None]
  - GAIT DISTURBANCE [None]
  - HYPERTENSION [None]
  - IMPAIRED DRIVING ABILITY [None]
  - IMPAIRED WORK ABILITY [None]
  - INJURY [None]
  - JOINT RANGE OF MOTION DECREASED [None]
  - MASTOIDITIS [None]
  - MUSCULOSKELETAL DISCOMFORT [None]
  - NAUSEA [None]
  - NERVOUS SYSTEM DISORDER [None]
  - NUCLEAR MAGNETIC RESONANCE IMAGING BRAIN ABNORMAL [None]
  - OEDEMA PERIPHERAL [None]
  - SENSORY DISTURBANCE [None]
  - TRANSIENT ISCHAEMIC ATTACK [None]
